FAERS Safety Report 8536052-7 (Version None)
Quarter: 2012Q3

REPORT INFORMATION
  Report Type: 
  Country: None (occurrence: None)
  Receive Date: 20120725
  Receipt Date: 20120720
  Transmission Date: 20120928
  Serious: Yes (Life-Threatening, Hospitalization)
  Sender: FDA-Public Use
  Company Number: FR-MPIJNJ-2012-05130

PATIENT

DRUGS (6)
  1. VALSARTAN [Concomitant]
  2. ATORVASTATIN [Concomitant]
  3. NEXIUM [Concomitant]
  4. VELCADE [Suspect]
     Indication: AMYLOIDOSIS
     Dosage: 3.5 MG, UNK
     Route: 042
     Dates: start: 20111010, end: 20111012
  5. MELPHALAN HYDROCHLORIDE [Suspect]
     Indication: AMYLOIDOSIS
     Dosage: UNK
     Route: 042
     Dates: start: 20111010, end: 20111012
  6. PREDNISONE [Concomitant]
     Dosage: UNK MG, UNK
     Route: 042

REACTIONS (6)
  - RENAL FAILURE ACUTE [None]
  - HAEMODYNAMIC INSTABILITY [None]
  - OFF LABEL USE [None]
  - DEHYDRATION [None]
  - VOMITING [None]
  - SEPTIC SHOCK [None]
